FAERS Safety Report 8920193 (Version 4)
Quarter: 2013Q1

REPORT INFORMATION
  Report Type: Spontaneous
  Country: US (occurrence: US)
  Receive Date: 20121122
  Receipt Date: 20130201
  Transmission Date: 20140127
  Serious: Yes (Other)
  Sender: FDA-Public Use
  Company Number: PHEH2012US022640

PATIENT
  Sex: Female
  Weight: 77.55 kg

DRUGS (11)
  1. GLEEVEC [Suspect]
     Indication: CHRONIC MYELOID LEUKAEMIA
     Dosage: 400 MG DAILY
     Route: 048
     Dates: start: 200610
  2. GLEEVEC [Suspect]
     Dosage: 400 MG, EVERY OTHER DAY
     Dates: start: 201210
  3. NEUPOGEN [Concomitant]
     Dosage: UNK UKN, UNK
  4. ARANESP [Concomitant]
     Dosage: UNK UKN, UNK
  5. COREG [Concomitant]
     Dosage: UNK UKN, UNK
  6. DIOVAN [Concomitant]
     Dosage: UNK UKN, UNK
  7. VERATEN [Concomitant]
     Dosage: UNK UKN, UNK
  8. DITROPAN XL [Concomitant]
     Dosage: UNK UKN, UNK
  9. VERELAN PM [Concomitant]
  10. TRAZODONE [Concomitant]
  11. SERTRALINE HCL [Concomitant]

REACTIONS (5)
  - Impaired healing [Recovering/Resolving]
  - Pain [Recovering/Resolving]
  - Blister [Recovering/Resolving]
  - Liver disorder [Recovering/Resolving]
  - Stress [Recovering/Resolving]
